FAERS Safety Report 6852212-5 (Version None)
Quarter: 2010Q3

REPORT INFORMATION
  Report Type: 
  Country: None (occurrence: None)
  Receive Date: 20100717
  Receipt Date: 20071110
  Transmission Date: 20110219
  Serious: No
  Sender: FDA-Public Use
  Company Number: US-PFIZER INC-2007094811

PATIENT
  Sex: Female
  Weight: 79.4 kg

DRUGS (8)
  1. CHANTIX [Suspect]
     Indication: SMOKING CESSATION THERAPY
     Dates: start: 20071001, end: 20071101
  2. ZOCOR [Concomitant]
  3. AMLODIPINE [Concomitant]
  4. AVANDIA [Concomitant]
  5. ENALAPRIL MALEATE [Concomitant]
  6. GLIPIZIDE [Concomitant]
  7. PAXIL [Concomitant]
  8. SEROQUEL [Concomitant]

REACTIONS (1)
  - NAUSEA [None]
